FAERS Safety Report 15700511 (Version 7)
Quarter: 2019Q2

REPORT INFORMATION
  Report Type: Report from Study
  Country: ES (occurrence: ES)
  Receive Date: 20181207
  Receipt Date: 20190614
  Transmission Date: 20190711
  Serious: Yes (Other)
  Sender: FDA-Public Use
  Company Number: ES-UCBSA-2018015665

PATIENT
  Age: 68 Year
  Sex: Female

DRUGS (5)
  1. ROTIGOTINE [Suspect]
     Active Substance: ROTIGOTINE
     Dosage: 4 MG, ONCE DAILY (QD)
     Route: 062
  2. ROTIGOTINE [Suspect]
     Active Substance: ROTIGOTINE
     Dosage: 8 MG, ONCE DAILY (QD)
     Route: 062
     Dates: start: 201804
  3. SINEMET [Concomitant]
     Active Substance: CARBIDOPA\LEVODOPA
     Indication: PRODUCT USED FOR UNKNOWN INDICATION
  4. ROTIGOTINE [Suspect]
     Active Substance: ROTIGOTINE
     Indication: PARKINSON^S DISEASE
     Dosage: 2 MG, ONCE DAILY (QD)
     Route: 062
  5. ROTIGOTINE [Suspect]
     Active Substance: ROTIGOTINE
     Dosage: 1 AND A HALF PATCH OF 8MG PATCH APPLIED
     Route: 062
     Dates: start: 20190325

REACTIONS (13)
  - Joint injury [Recovering/Resolving]
  - Pigmentation disorder [Recovered/Resolved]
  - Intentional product misuse [Unknown]
  - Product adhesion issue [Unknown]
  - Somnolence [Not Recovered/Not Resolved]
  - Pruritus [Recovering/Resolving]
  - Spinal fracture [Not Recovered/Not Resolved]
  - Pain in extremity [Not Recovered/Not Resolved]
  - Fall [Recovering/Resolving]
  - Application site erythema [Not Recovered/Not Resolved]
  - Off label use [Unknown]
  - Facial paralysis [Not Recovered/Not Resolved]
  - Application site pruritus [Not Recovered/Not Resolved]

NARRATIVE: CASE EVENT DATE: 20180402
